FAERS Safety Report 12987069 (Version 6)
Quarter: 2017Q1

REPORT INFORMATION
  Report Type: Report from Study
  Country: US (occurrence: US)
  Receive Date: 20161130
  Receipt Date: 20170203
  Transmission Date: 20170428
  Serious: Yes (Life-Threatening, Hospitalization, Other)
  Sender: FDA-Public Use
  Company Number: US-JNJFOC-20161126500

PATIENT
  Age: 74 Year
  Sex: Male
  Weight: 71.7 kg

DRUGS (5)
  1. CRANBERRY. [Concomitant]
     Active Substance: CRANBERRY
     Route: 065
     Dates: start: 20160513
  2. TRAMADOL HYDROCHLORIDE. [Concomitant]
     Active Substance: TRAMADOL HYDROCHLORIDE
     Route: 065
     Dates: start: 20160513
  3. GLUCOSAMINE [Concomitant]
     Active Substance: GLUCOSAMINE
     Route: 065
     Dates: start: 20160513, end: 20160712
  4. SIMVASTATIN. [Concomitant]
     Active Substance: SIMVASTATIN
     Route: 065
     Dates: start: 20160513
  5. DOXIL [Suspect]
     Active Substance: DOXORUBICIN HYDROCHLORIDE
     Indication: SOFT TISSUE SARCOMA
     Route: 042
     Dates: start: 20160610, end: 20160610

REACTIONS (2)
  - Small intestinal obstruction [Recovered/Resolved with Sequelae]
  - Atrial fibrillation [Recovered/Resolved]

NARRATIVE: CASE EVENT DATE: 20160611
